FAERS Safety Report 9292785 (Version 1)
Quarter: 2013Q2

REPORT INFORMATION
  Report Type: Spontaneous
  Country: US (occurrence: None)
  Receive Date: 20130515
  Receipt Date: 20130515
  Transmission Date: 20140414
  Serious: Yes (Life-Threatening, Hospitalization, Disabling)
  Sender: FDA-Public Use
  Company Number: None

PATIENT
  Age: 84 Year
  Sex: Male
  Weight: 74.84 kg

DRUGS (1)
  1. QUETIAPINE FUMARATE [Suspect]
     Dosage: 1/2 TAB?FOR YEARS

REACTIONS (4)
  - Loss of consciousness [None]
  - Dysstasia [None]
  - Abasia [None]
  - Speech disorder [None]
